FAERS Safety Report 4999628-X (Version None)
Quarter: 2006Q2

REPORT INFORMATION
  Report Type: 
  Country: None (occurrence: None)
  Receive Date: 20060511
  Receipt Date: 20050913
  Transmission Date: 20061013
  Serious: Yes (Death)
  Sender: FDA-Public Use
  Company Number: US-MERCK-0509USA01827

PATIENT
  Age: 63 Year
  Sex: Male
  Weight: 135 kg

DRUGS (24)
  1. VIOXX [Suspect]
     Indication: PAIN
     Route: 048
     Dates: start: 20021201, end: 20031109
  2. VIOXX [Suspect]
     Route: 048
     Dates: start: 20021201, end: 20031109
  3. VIOXX [Suspect]
     Indication: ARTHRITIS
     Route: 048
     Dates: start: 20021201, end: 20031109
  4. VIOXX [Suspect]
     Route: 048
     Dates: start: 20021201, end: 20031109
  5. HUMALOG [Concomitant]
     Route: 065
  6. INSULIN LISPRO [Concomitant]
     Route: 065
  7. LANTUS [Concomitant]
     Route: 065
  8. ASPIRIN [Concomitant]
     Route: 065
  9. COUMADIN [Concomitant]
     Route: 065
  10. GLYBURIDE [Concomitant]
     Route: 065
  11. DIGOXIN [Concomitant]
     Route: 065
  12. AMARYL [Concomitant]
     Route: 065
  13. ACTOS [Concomitant]
     Route: 065
  14. REGLAN [Concomitant]
     Route: 065
  15. COREG [Concomitant]
     Route: 065
  16. COREG [Concomitant]
     Route: 065
  17. FLOMAX [Concomitant]
     Route: 065
  18. ZOCOR [Concomitant]
     Route: 048
  19. ZESTRIL [Concomitant]
     Route: 065
  20. LASIX [Concomitant]
     Route: 065
  21. ASCORBIC ACID [Concomitant]
     Route: 065
  22. METOLAZONE [Concomitant]
     Route: 065
  23. ACARBOSE [Concomitant]
     Route: 065
  24. POTASSIUM CHLORIDE [Concomitant]
     Route: 065

REACTIONS (7)
  - DIABETIC RETINOPATHY [None]
  - GOUT [None]
  - HERNIA [None]
  - MITRAL VALVE INCOMPETENCE [None]
  - PULMONARY HYPERTENSION [None]
  - RENAL CYST [None]
  - SUDDEN CARDIAC DEATH [None]
